FAERS Safety Report 7867369-7 (Version None)
Quarter: 2011Q4

REPORT INFORMATION
  Report Type: 
  Country: None (occurrence: None)
  Receive Date: 20111021
  Receipt Date: 20111017
  Transmission Date: 20120403
  Serious: Yes (Other)
  Sender: FDA-Public Use
  Company Number: 2011SP049001

PATIENT
  Age: 28 Year
  Sex: Female

DRUGS (1)
  1. IMPLANON [Suspect]
     Indication: CONTRACEPTION
     Dosage: SC
     Route: 058
     Dates: start: 20081223, end: 20110729

REACTIONS (3)
  - IMPLANT SITE PRURITUS [None]
  - DEVICE BREAKAGE [None]
  - DEVICE DIFFICULT TO USE [None]
